FAERS Safety Report 12975734 (Version 1)
Quarter: 2016Q4

REPORT INFORMATION
  Report Type: Report from Study
  Country: GB (occurrence: GB)
  Receive Date: 20161125
  Receipt Date: 20161125
  Transmission Date: 20170207
  Serious: Yes (Other)
  Sender: FDA-Public Use
  Company Number: GB-GILEAD-2016-0244653

PATIENT
  Age: 48 Year
  Sex: Female

DRUGS (6)
  1. RITONAVIR. [Concomitant]
     Active Substance: RITONAVIR
     Indication: HIV INFECTION
     Dosage: UNK
     Route: 065
     Dates: start: 2012
  2. CLOPIDOGREL [Concomitant]
     Active Substance: CLOPIDOGREL BISULFATE
     Dosage: UNK
  3. SERTRALINE [Concomitant]
     Active Substance: SERTRALINE HYDROCHLORIDE
     Dosage: UNK
  4. EMTRICITABINE/TENOFOVIR DISOPROXIL FUMARATE [Suspect]
     Active Substance: EMTRICITABINE\TENOFOVIR DISOPROXIL FUMARATE
     Indication: HIV INFECTION
     Dosage: UNK
     Route: 065
     Dates: start: 2012
  5. DARUNAVIR [Concomitant]
     Active Substance: DARUNAVIR
     Indication: HIV INFECTION
     Dosage: UNK
     Route: 065
     Dates: start: 2012
  6. BECLOMETHASONE                     /00212602/ [Concomitant]
     Active Substance: BECLOMETHASONE
     Dosage: UNK

REACTIONS (6)
  - Cerebrovascular disorder [Unknown]
  - Osteoporosis [Not Recovered/Not Resolved]
  - Glomerular filtration rate decreased [Not Recovered/Not Resolved]
  - Liver function test abnormal [Unknown]
  - Hemianopia homonymous [Unknown]
  - Osteopenia [Unknown]

NARRATIVE: CASE EVENT DATE: 20160128
